FAERS Safety Report 12479764 (Version 9)
Quarter: 2016Q4

REPORT INFORMATION
  Report Type: Spontaneous
  Country: US (occurrence: US)
  Receive Date: 20160620
  Receipt Date: 20161216
  Transmission Date: 20170207
  Serious: Yes (Hospitalization, Other)
  Sender: FDA-Public Use
  Company Number: US-PFIZER INC-2016285752

PATIENT
  Age: 79 Year
  Sex: Female
  Weight: 88 kg

DRUGS (50)
  1. SUTENT [Suspect]
     Active Substance: SUNITINIB MALATE
     Dosage: 37.5 MG, CYCLIC (2 WEEKS ON/1 WEEK OFF)
     Dates: start: 20160711, end: 20160713
  2. CALCIUM [Concomitant]
     Active Substance: CALCIUM
     Dosage: UNK
  3. PREVALITE [Concomitant]
     Active Substance: CHOLESTYRAMINE
     Indication: ABNORMAL FAECES
     Dosage: UNK, AS NEEDED
  4. CLONIDINE HCL [Concomitant]
     Active Substance: CLONIDINE HYDROCHLORIDE
     Dosage: 0.1 MG, 2X/DAY
  5. HYDROCHLOROTHIAZIDE. [Concomitant]
     Active Substance: HYDROCHLOROTHIAZIDE
     Dosage: 25 MG, DAILY
     Route: 048
  6. METOPROLOL SUCCINATE. [Concomitant]
     Active Substance: METOPROLOL SUCCINATE
     Dosage: 10 MG, UNK
     Route: 048
  7. ATORVASTATIN CALCIUM. [Concomitant]
     Active Substance: ATORVASTATIN CALCIUM
     Dosage: 20 MG, UNK
  8. METOPROLOL. [Concomitant]
     Active Substance: METOPROLOL
     Dosage: UNK
  9. SULFASALAZINE. [Concomitant]
     Active Substance: SULFASALAZINE
     Indication: CROHN^S DISEASE
     Dosage: UNK
  10. MONTELUKAST SODIUM. [Concomitant]
     Active Substance: MONTELUKAST SODIUM
     Indication: BLOOD PRESSURE SYSTOLIC
     Dosage: 10 MG, 1X/DAY
  11. MAGNESIUM OXIDE. [Concomitant]
     Active Substance: MAGNESIUM OXIDE
     Dosage: 500 MG, DAILY
     Route: 048
  12. SUTENT [Suspect]
     Active Substance: SUNITINIB MALATE
     Dosage: 37.5 MG, CYCLIC (14 DAYS ON 7 DAYS OFF )
     Dates: start: 20160519
  13. SUTENT [Suspect]
     Active Substance: SUNITINIB MALATE
     Dosage: 37.5 MG, CYCLIC ( A DAY, CURRENTLY OFF-FOR PAST 10 DAYS)
  14. VITAMIN B [Concomitant]
     Active Substance: VITAMIN B
     Dosage: 1 DF, DAILY
     Route: 048
  15. VITAMIN C [Concomitant]
     Active Substance: ASCORBIC ACID
     Dosage: UNK
  16. HYDRALAZINE [Concomitant]
     Active Substance: HYDRALAZINE HYDROCHLORIDE
     Dosage: UNK
     Dates: start: 20160615
  17. PEPCID [Concomitant]
     Active Substance: FAMOTIDINE
     Dosage: 1 DF, AS NEEDED
  18. FERROUS SULFATE. [Concomitant]
     Active Substance: FERROUS SULFATE
     Dosage: 325 MG, DAILY
     Route: 048
  19. CITRACAL MAXIMUM [Concomitant]
     Active Substance: CALCIUM CITRATE\CHOLECALCIFEROL
     Dosage: 1 DF, DAILY
     Route: 048
  20. OMEPRAZOLE MAGNESIUM. [Concomitant]
     Active Substance: OMEPRAZOLE MAGNESIUM
     Dosage: 20 MG, DAILY
     Route: 048
  21. FLONASE [Concomitant]
     Active Substance: FLUTICASONE PROPIONATE
     Dosage: UNK
     Dates: end: 201610
  22. SINGULAIR [Concomitant]
     Active Substance: MONTELUKAST SODIUM
     Dosage: UNK
     Dates: start: 20160616
  23. LOSARTAN POTASSIUM. [Concomitant]
     Active Substance: LOSARTAN POTASSIUM
     Dosage: 100 MG, DAILY
  24. SUTENT [Suspect]
     Active Substance: SUNITINIB MALATE
     Dosage: 37.5 MG, CYCLIC (2 WEEKS ON/1 WEEK OFF)
     Dates: start: 20160718, end: 20160807
  25. LIPITOR [Concomitant]
     Active Substance: ATORVASTATIN CALCIUM
     Dosage: UNK
  26. VITAMIN D [Concomitant]
     Active Substance: CHOLECALCIFEROL
     Dosage: UNK
  27. BENADRYL ALLERGY [Concomitant]
     Active Substance: DIPHENHYDRAMINE HYDROCHLORIDE
     Dosage: 25 MG, AS NEEDED
  28. OMEGA-3 FATTY ACIDS [Concomitant]
     Active Substance: OMEGA-3 FATTY ACIDS
     Dosage: 1200 MG, DAILY
     Route: 048
  29. ATORVASTATIN CALCIUM. [Concomitant]
     Active Substance: ATORVASTATIN CALCIUM
     Dosage: 80 MG, 1X/DAY (AT BEDTIME)
     Route: 048
  30. SULFADIAZINE. [Concomitant]
     Active Substance: SULFADIAZINE
     Dosage: 2000 MG, 2X/DAY
     Route: 048
  31. LIALDA [Concomitant]
     Active Substance: MESALAMINE
     Dosage: 2.4 G, 1X/DAY (2 TABS)
  32. VITAMIN B [Concomitant]
     Active Substance: VITAMIN B
     Dosage: UNK
  33. FLONASE [Concomitant]
     Active Substance: FLUTICASONE PROPIONATE
     Dosage: UNK
     Dates: start: 20160616
  34. CLONIDINE HCL [Concomitant]
     Active Substance: CLONIDINE HYDROCHLORIDE
     Indication: BLOOD PRESSURE SYSTOLIC
     Dosage: 0.1 MG, 3X/DAY (EVERY 8 HRS)
  35. HYDROCHLOROTHIAZIDE. [Concomitant]
     Active Substance: HYDROCHLOROTHIAZIDE
     Dosage: 25 MG, 1X/DAY
  36. FLUTICASONE PROPIONATE. [Concomitant]
     Active Substance: FLUTICASONE PROPIONATE
     Dosage: 2 DF, DAILY
     Route: 045
  37. ICAPS LUTEIN + OMEGA [Concomitant]
     Dosage: UNK UNK, AS NEEDED
     Route: 048
  38. DOCQLACE [Concomitant]
     Active Substance: DOCUSATE SODIUM
     Dosage: 100 MG, AS NEEDED
     Route: 048
  39. NORVASC [Concomitant]
     Active Substance: AMLODIPINE BESYLATE
     Dosage: 2.5 MG, DAILY
     Route: 048
  40. KLOR-CON [Concomitant]
     Active Substance: POTASSIUM CHLORIDE
     Dosage: 10 MEQ, DAILY
     Route: 048
  41. VITAMIN B12 [Concomitant]
     Active Substance: CYANOCOBALAMIN
     Dosage: 1000 UG, DAILY
     Route: 048
  42. NAPROXEN SODIUM. [Concomitant]
     Active Substance: NAPROXEN SODIUM
     Dosage: 220 MG, AS NEEDED
  43. SUTENT [Suspect]
     Active Substance: SUNITINIB MALATE
     Indication: METASTATIC RENAL CELL CARCINOMA
     Dosage: 50 MG, CYCLIC (2 WEEKS ON/1 WEEK OFF)
     Dates: start: 20160519, end: 20160630
  44. SUTENT [Suspect]
     Active Substance: SUNITINIB MALATE
     Dosage: 37.5 MG, CYCLIC (2 WEEKS ON/1 WEEK OFF)
     Dates: start: 20160817
  45. VITAMIN D [Concomitant]
     Active Substance: CHOLECALCIFEROL
     Dosage: 2000 IU, DAILY
     Route: 048
  46. VITAMIN C [Concomitant]
     Active Substance: ASCORBIC ACID
     Dosage: 500 MG, 2X/DAY
     Route: 048
  47. POTASSIUM [Concomitant]
     Active Substance: POTASSIUM
     Dosage: UNK
  48. HYDRALAZINE [Concomitant]
     Active Substance: HYDRALAZINE HYDROCHLORIDE
     Dosage: 100 MG, 3X/DAY
  49. PREVALITE [Concomitant]
     Active Substance: CHOLESTYRAMINE
     Dosage: UNK, 1X/DAY
  50. SMZ-TMP [Concomitant]
     Active Substance: SULFAMETHOXAZOLE\TRIMETHOPRIM
     Dosage: 1 DF, 2X/DAY [SULFAMETHOXAZOLE 800 MG] [TRIMETHOPRIM 160 MG]
     Route: 048

REACTIONS (32)
  - Decreased appetite [Unknown]
  - Eye discharge [Unknown]
  - Dry eye [Unknown]
  - Kidney infection [Unknown]
  - Asthenia [Recovered/Resolved]
  - Pruritus [Unknown]
  - Conjunctivitis [Unknown]
  - Hypersensitivity [Unknown]
  - Urinary tract infection [Unknown]
  - Memory impairment [Not Recovered/Not Resolved]
  - Haemorrhoids [Unknown]
  - Arthralgia [Recovered/Resolved]
  - Sleep disorder [Not Recovered/Not Resolved]
  - Blood pressure decreased [Recovered/Resolved]
  - Gastrointestinal haemorrhage [Unknown]
  - Blister [Unknown]
  - Weight decreased [Unknown]
  - Fatigue [Not Recovered/Not Resolved]
  - Pain in extremity [Recovered/Resolved]
  - Constipation [Recovered/Resolved]
  - Incontinence [Recovered/Resolved]
  - Faeces soft [Not Recovered/Not Resolved]
  - Dry mouth [Unknown]
  - Ocular hyperaemia [Unknown]
  - Diarrhoea [Not Recovered/Not Resolved]
  - Hypertension [Unknown]
  - Dyspepsia [Not Recovered/Not Resolved]
  - Dry skin [Recovered/Resolved]
  - Dysgeusia [Not Recovered/Not Resolved]
  - Sinus disorder [Not Recovered/Not Resolved]
  - Peripheral swelling [Not Recovered/Not Resolved]
  - Malaise [Unknown]

NARRATIVE: CASE EVENT DATE: 201604
